FAERS Safety Report 11263280 (Version 2)
Quarter: 2016Q1

REPORT INFORMATION
  Report Type: Spontaneous
  Country: JP (occurrence: JP)
  Receive Date: 20150712
  Receipt Date: 20160217
  Transmission Date: 20160525
  Serious: Yes (Other)
  Sender: FDA-Public Use
  Company Number: JP-JNJFOC-20150707771

PATIENT
  Age: 69 Year
  Sex: Male
  Weight: 68 kg

DRUGS (6)
  1. HUMALOG [Concomitant]
     Active Substance: INSULIN LISPRO
     Indication: TYPE 2 DIABETES MELLITUS
     Dosage: DOSE: 3-6-4 UNITS/ DAY
     Route: 051
     Dates: start: 20141012
  2. HUMALOG [Concomitant]
     Active Substance: INSULIN LISPRO
     Indication: TYPE 2 DIABETES MELLITUS
     Dosage: DOSE:  5-8-6 UNITS/ DAY
     Route: 051
     Dates: start: 20040629, end: 20141011
  3. CANAGLU [Suspect]
     Active Substance: CANAGLIFLOZIN
     Indication: TYPE 2 DIABETES MELLITUS
     Route: 048
     Dates: start: 20141012, end: 20150117
  4. PLETAAL [Concomitant]
     Active Substance: CILOSTAZOL
     Route: 048
     Dates: start: 20090110
  5. AZILVA [Concomitant]
     Active Substance: AZILSARTAN KAMEDOXOMIL
     Route: 048
     Dates: start: 20130511
  6. CADUET [Concomitant]
     Active Substance: AMLODIPINE BESYLATE\ATORVASTATIN CALCIUM
     Route: 048
     Dates: start: 20111105

REACTIONS (1)
  - Creatinine renal clearance decreased [Unknown]

NARRATIVE: CASE EVENT DATE: 20141108
